FAERS Safety Report 5113194-X (Version None)
Quarter: 2006Q3

REPORT INFORMATION
  Report Type: 
  Country: None (occurrence: None)
  Receive Date: 20060920
  Receipt Date: 20060901
  Transmission Date: 20061208
  Serious: Yes (Hospitalization)
  Sender: FDA-Public Use
  Company Number: US200609000754

PATIENT
  Age: 85 Year
  Sex: Female

DRUGS (9)
  1. FORTEO [Suspect]
     Indication: OSTEOPOROSIS
     Dates: start: 20041001
  2. FORTEO PEN (FORTEO PEN) PEN, DISPOSABLE [Concomitant]
  3. BENICAR /USA/ (OLMESARTAN MEDOXOMIL) [Concomitant]
  4. METOPROLOL (METOPROLOL) [Concomitant]
  5. VITAMINS-MINERALS THERAPUETIC (VITAMINS-MINERALS THERAPEUTIC UNKNOWN F [Concomitant]
  6. ZETIA [Concomitant]
  7. ECORTIN (ACETYLSALICYCLIC ACID) [Concomitant]
  8. CITRACAL + D (CALCIUM CITRATE, ERGOCALCIFEROL) [Concomitant]
  9. QUININE SULFATE [Concomitant]

REACTIONS (3)
  - CHEST PAIN [None]
  - DYSPNOEA [None]
  - MUSCLE SPASMS [None]
